FAERS Safety Report 4576125-7 (Version None)
Quarter: 2005Q1

REPORT INFORMATION
  Report Type: 
  Country: None (occurrence: None)
  Receive Date: 20050201
  Receipt Date: 20050201
  Transmission Date: 20050727
  Serious: No
  Sender: FDA-Public Use
  Company Number: None

PATIENT
  Age: 26 Year
  Sex: Female

DRUGS (1)
  1. 4 WAYS NASAL SPRAY. PHENYLEPHRINE HYDROCHLORIDE [Suspect]
     Indication: RHINORRHOEA
     Dosage: 2 SPRAY EA NOSTRIL BID
     Route: 045

REACTIONS (2)
  - ASTHMA [None]
  - NASAL CONGESTION [None]
